FAERS Safety Report 20750405 (Version 1)
Quarter: 2022Q2

REPORT INFORMATION
  Report Type: Spontaneous
  Country: CN (occurrence: CN)
  Receive Date: 20220426
  Receipt Date: 20220426
  Transmission Date: 20220721
  Serious: Yes (Hospitalization)
  Sender: FDA-Public Use
  Company Number: CN-ELI_LILLY_AND_COMPANY-CN202204008145

PATIENT
  Sex: Female

DRUGS (6)
  1. HUMULIN R [Suspect]
     Active Substance: INSULIN HUMAN
     Indication: Diabetes mellitus
     Dosage: 8 DOSAGE FORM, EACH MORNING
     Route: 058
     Dates: start: 2005, end: 202110
  2. HUMULIN R [Suspect]
     Active Substance: INSULIN HUMAN
     Dosage: 7 DOSAGE FORM, EACH EVENING
     Route: 058
     Dates: start: 2005, end: 202110
  3. HUMULIN R [Suspect]
     Active Substance: INSULIN HUMAN
     Dosage: 6 DOSAGE FORM, EACH NIGHT
     Route: 058
     Dates: start: 2005, end: 202110
  4. HUMULIN N [Suspect]
     Active Substance: INSULIN HUMAN
     Indication: Diabetes mellitus
     Dosage: 6 DOSAGE FORM, EACH NIGHT
     Route: 058
     Dates: start: 2005, end: 202110
  5. INSULIN GLARGINE [Suspect]
     Active Substance: INSULIN GLARGINE
     Indication: Diabetes mellitus
     Dosage: UNK UNK, UNKNOWN
     Route: 065
     Dates: start: 202110
  6. INSULIN ASPART [Suspect]
     Active Substance: INSULIN ASPART
     Indication: Diabetes mellitus
     Dosage: UNK UNK, UNKNOWN
     Route: 065
     Dates: start: 202110

REACTIONS (4)
  - Blood glucose fluctuation [Unknown]
  - Anaemia [Unknown]
  - Cardiac disorder [Unknown]
  - Drug ineffective [Unknown]

NARRATIVE: CASE EVENT DATE: 20210501
